FAERS Safety Report 24106472 (Version 2)
Quarter: 2024Q3

REPORT INFORMATION
  Report Type: Spontaneous
  Country: AT (occurrence: AT)
  Receive Date: 20240717
  Receipt Date: 20240729
  Transmission Date: 20241017
  Serious: Yes (Hospitalization, Other)
  Sender: SANDOZ
  Company Number: AT-ABBVIE-22K-009-4328414-00

PATIENT
  Age: 26 Year
  Sex: Male

DRUGS (8)
  1. ADALIMUMAB [Suspect]
     Active Substance: ADALIMUMAB\ISOPROPYL ALCOHOL
     Indication: Crohn^s disease
     Dosage: 160.000MG
     Route: 058
     Dates: start: 20210610, end: 20220407
  2. ADALIMUMAB [Suspect]
     Active Substance: ADALIMUMAB\ISOPROPYL ALCOHOL
     Dosage: UNK
     Route: 058
  3. HUMIRA [Suspect]
     Active Substance: ADALIMUMAB
     Indication: Dermatitis atopic
     Dosage: UNKNOWN
     Route: 058
     Dates: end: 2018
  4. HUMIRA [Suspect]
     Active Substance: ADALIMUMAB
     Indication: Crohn^s disease
  5. RINVOQ [Suspect]
     Active Substance: UPADACITINIB
     Indication: Dermatitis atopic
     Dosage: UNK, START DATE-DEC-2023
     Route: 048
  6. RINVOQ [Suspect]
     Active Substance: UPADACITINIB
     Route: 048
     Dates: end: 202308
  7. CLOBETASOL [Concomitant]
     Active Substance: CLOBETASOL
     Indication: Dermatitis atopic
     Route: 065
  8. DIFLUCORTOLONE VALERATE [Concomitant]
     Active Substance: DIFLUCORTOLONE VALERATE
     Indication: Dermatitis atopic
     Route: 065

REACTIONS (29)
  - Ileal stenosis [Unknown]
  - Alopecia totalis [Not Recovered/Not Resolved]
  - Gastrointestinal disorder [Not Recovered/Not Resolved]
  - Dermatitis atopic [Not Recovered/Not Resolved]
  - Mucosal disorder [Unknown]
  - Fistula [Unknown]
  - Colitis ulcerative [Unknown]
  - Upper gastrointestinal haemorrhage [Unknown]
  - Anorectal swelling [Unknown]
  - Skin disorder [Unknown]
  - Muscle rupture [Unknown]
  - Abdominal lymphadenopathy [Unknown]
  - Anal fistula [Unknown]
  - Fistula [Unknown]
  - Flatulence [Unknown]
  - Weight decreased [Unknown]
  - Gastritis [Unknown]
  - Proctalgia [Unknown]
  - Decreased appetite [Unknown]
  - C-reactive protein increased [Unknown]
  - Faecal calprotectin increased [Unknown]
  - Wound [Unknown]
  - Alopecia areata [Unknown]
  - Gastrooesophageal reflux disease [Unknown]
  - Nausea [Unknown]
  - Alopecia [Unknown]
  - Rash [Unknown]
  - Rash [Unknown]
  - Pruritus [Unknown]

NARRATIVE: CASE EVENT DATE: 20211001
